FAERS Safety Report 13299783 (Version 1)
Quarter: 2017Q1

REPORT INFORMATION
  Report Type: Spontaneous
  Country: US (occurrence: US)
  Receive Date: 20170306
  Receipt Date: 20170306
  Transmission Date: 20170428
  Serious: Yes (Other)
  Sender: FDA-Public Use
  Company Number: US-TEIKOKU PHARMA USA-TPU2017-00124

PATIENT
  Age: 94 Year
  Sex: Female
  Weight: 45.4 kg

DRUGS (6)
  1. LIDOCAINE PATCH [Suspect]
     Active Substance: LIDOCAINE
     Indication: ROTATOR CUFF SYNDROME
  2. TYLENOL [Concomitant]
     Active Substance: ACETAMINOPHEN
     Indication: HUMERUS FRACTURE
  3. LIDOCAINE PATCH [Suspect]
     Active Substance: LIDOCAINE
     Indication: HUMERUS FRACTURE
  4. LIDOCAINE PATCH [Suspect]
     Active Substance: LIDOCAINE
     Indication: MUSCULOSKELETAL PAIN
     Dosage: 1 PATCH, 12 HOURS ON, 12 HOURS OFF ON THE RIGHT SHOULDER, ROTATOR CUFF AREA
     Route: 061
  5. TYLENOL [Concomitant]
     Active Substance: ACETAMINOPHEN
     Indication: MUSCULOSKELETAL PAIN
  6. TYLENOL [Concomitant]
     Active Substance: ACETAMINOPHEN
     Indication: ROTATOR CUFF SYNDROME

REACTIONS (3)
  - Humerus fracture [Not Recovered/Not Resolved]
  - Fall [Unknown]
  - Pain [Recovered/Resolved]

NARRATIVE: CASE EVENT DATE: 201609
